FAERS Safety Report 23989486 (Version 1)
Quarter: 2024Q2

REPORT INFORMATION
  Report Type: Spontaneous
  Country: GB (occurrence: GB)
  Receive Date: 20240619
  Receipt Date: 20240619
  Transmission Date: 20240716
  Serious: Yes (Other)
  Sender: FDA-Public Use
  Company Number: None

PATIENT
  Sex: Female

DRUGS (1)
  1. OMEPRAZOLE [Suspect]
     Active Substance: DONEPEZIL HYDROCHLORIDE\OMEPRAZOLE\OMEPRAZOLE MAGNESIUM
     Indication: Gastritis
     Dosage: 20MG TWICE A DAY, MORNING AND EVENING (40MG TOTAL)
     Route: 065
     Dates: start: 20240515

REACTIONS (1)
  - Menstruation delayed [Not Recovered/Not Resolved]
